FAERS Safety Report 5852069-5 (Version None)
Quarter: 2008Q3

REPORT INFORMATION
  Report Type: 
  Country: None (occurrence: None)
  Receive Date: 20080819
  Receipt Date: 20080819
  Transmission Date: 20090109
  Serious: Yes (Other)
  Sender: FDA-Public Use
  Company Number: None

PATIENT
  Age: 26 Year
  Sex: Female
  Weight: 68.0396 kg

DRUGS (1)
  1. MIRENA [Suspect]
     Indication: CONTRACEPTION
     Dosage: VAG, FROM APRIL TO JULY
     Route: 067

REACTIONS (22)
  - ACNE [None]
  - ANXIETY [None]
  - BACK PAIN [None]
  - DEPRESSION [None]
  - DISTURBANCE IN ATTENTION [None]
  - DYSPAREUNIA [None]
  - HORMONE LEVEL ABNORMAL [None]
  - INSOMNIA [None]
  - IUCD COMPLICATION [None]
  - JAUNDICE [None]
  - MIGRAINE [None]
  - NERVOUSNESS [None]
  - NIGHT SWEATS [None]
  - OBSESSIVE THOUGHTS [None]
  - PANIC ATTACK [None]
  - PARAESTHESIA [None]
  - PRURITUS [None]
  - THINKING ABNORMAL [None]
  - THROAT TIGHTNESS [None]
  - VAGINAL PAIN [None]
  - VISUAL IMPAIRMENT [None]
  - WEIGHT FLUCTUATION [None]
